FAERS Safety Report 18061658 (Version 3)
Quarter: 2020Q3

REPORT INFORMATION
  Report Type: Spontaneous
  Country: GB (occurrence: GB)
  Receive Date: 20200723
  Receipt Date: 20200911
  Transmission Date: 20201103
  Serious: Yes (Other)
  Sender: FDA-Public Use
  Company Number: GB-NOVOPROD-741347

PATIENT
  Age: 40 Year
  Sex: Female

DRUGS (2)
  1. NOVORAPID [Suspect]
     Active Substance: INSULIN ASPART
     Dosage: CHANGE THE CARTRIDGE, NEW BATCH
     Route: 058
  2. NOVORAPID [Suspect]
     Active Substance: INSULIN ASPART
     Indication: TYPE 1 DIABETES MELLITUS
     Dosage: 35 IU, QD
     Route: 058

REACTIONS (2)
  - Diabetic ketoacidosis [Unknown]
  - Product leakage [Unknown]

NARRATIVE: CASE EVENT DATE: 20200714
